FAERS Safety Report 25742223 (Version 2)
Quarter: 2025Q4

REPORT INFORMATION
  Report Type: Spontaneous
  Country: EU (occurrence: EU)
  Receive Date: 20250829
  Receipt Date: 20251104
  Transmission Date: 20260118
  Serious: Yes (Congenital Anomaly)
  Sender: BIOGEN
  Company Number: EU-BIOGEN-2025BI01322279

PATIENT

DRUGS (5)
  1. AVONEX [Suspect]
     Active Substance: INTERFERON BETA-1A
     Indication: Maternal exposure timing unspecified
     Route: 064
  2. AVONEX [Suspect]
     Active Substance: INTERFERON BETA-1A
  3. AVONEX [Suspect]
     Active Substance: INTERFERON BETA-1A
  4. AVONEX [Suspect]
     Active Substance: INTERFERON BETA-1A
  5. AVONEX [Suspect]
     Active Substance: INTERFERON BETA-1A

REACTIONS (4)
  - Congenital diaphragmatic hernia [Unknown]
  - Intestinal transposition [Unknown]
  - Cardiac malposition [Unknown]
  - Foetal exposure during pregnancy [Recovered/Resolved]
